FAERS Safety Report 13368174 (Version 2)
Quarter: 2017Q2

REPORT INFORMATION
  Report Type: Spontaneous
  Country: US (occurrence: US)
  Receive Date: 20170324
  Receipt Date: 20170412
  Transmission Date: 20170830
  Serious: Yes (Hospitalization, Other)
  Sender: FDA-Public Use
  Company Number: US-SAOL THERAPEUTICS-2017SAO00544

PATIENT
  Sex: Female
  Weight: 63.49 kg

DRUGS (2)
  1. BACLOFEN. [Suspect]
     Active Substance: BACLOFEN
     Indication: MUSCLE SPASTICITY
     Route: 037
  2. MORPHINE [Suspect]
     Active Substance: MORPHINE

REACTIONS (16)
  - Feeling cold [Unknown]
  - Weight decreased [Unknown]
  - Insomnia [Unknown]
  - Hallucination [Unknown]
  - Headache [Unknown]
  - Drug withdrawal syndrome [Unknown]
  - Delirium [Unknown]
  - Complication associated with device [Unknown]
  - Muscle spasticity [Unknown]
  - Crying [Unknown]
  - Pain in extremity [Unknown]
  - Spinal compression fracture [Unknown]
  - Dysuria [Unknown]
  - Tremor [Unknown]
  - Pain [Unknown]
  - Incorrect route of drug administration [Unknown]
